FAERS Safety Report 6731670-0 (Version None)
Quarter: 2010Q2

REPORT INFORMATION
  Report Type: 
  Country: None (occurrence: None)
  Receive Date: 20100519
  Receipt Date: 20100505
  Transmission Date: 20101027
  Serious: Yes (Hospitalization, Other)
  Sender: FDA-Public Use
  Company Number: PHHY2010BR29031

PATIENT
  Age: 39 Year
  Sex: Female

DRUGS (1)
  1. DIOVAN HCT [Suspect]
     Route: 048

REACTIONS (5)
  - BLOOD PRESSURE INCREASED [None]
  - DEPRESSION [None]
  - DRUG DOSE OMISSION [None]
  - MENORRHAGIA [None]
  - SWELLING [None]
